FAERS Safety Report 19364496 (Version 1)
Quarter: 2021Q2

REPORT INFORMATION
  Report Type: Spontaneous
  Country: FR (occurrence: FR)
  Receive Date: 20210602
  Receipt Date: 20210602
  Transmission Date: 20210717
  Serious: Yes (Other)
  Sender: FDA-Public Use
  Company Number: FR-TEVA-2021-FR-1918750

PATIENT
  Age: 55 Year
  Sex: Male

DRUGS (2)
  1. ANDROCUR 50 MG, COMPRIME [Suspect]
     Active Substance: CYPROTERONE ACETATE
     Indication: GENDER REASSIGNMENT THERAPY
     Dosage: 100 MILLIGRAM DAILY;
     Route: 048
     Dates: start: 2013, end: 201812
  2. ESTREVA (ESTRADIOL THERAMEX) [Suspect]
     Active Substance: ESTRADIOL
     Indication: GENDER REASSIGNMENT THERAPY
     Route: 065

REACTIONS (1)
  - Meningioma [Recovered/Resolved]

NARRATIVE: CASE EVENT DATE: 2016
